FAERS Safety Report 20070607 (Version 2)
Quarter: 2024Q2

REPORT INFORMATION
  Report Type: Report from Study
  Country: DE (occurrence: DE)
  Receive Date: 20211115
  Receipt Date: 20240516
  Transmission Date: 20240716
  Serious: Yes (Hospitalization)
  Sender: FDA-Public Use
  Company Number: DE-BIOGEN-2021BI01065515

PATIENT
  Age: 48 Year
  Sex: Female

DRUGS (1)
  1. TECFIDERA [Suspect]
     Active Substance: DIMETHYL FUMARATE
     Indication: Multiple sclerosis
     Dosage: MAINTENANCE DOSE
     Route: 050
     Dates: start: 20140524, end: 202110

REACTIONS (4)
  - Depressed mood [Not Recovered/Not Resolved]
  - Mental fatigue [Not Recovered/Not Resolved]
  - Weight increased [Unknown]
  - Tooth loss [Unknown]

NARRATIVE: CASE EVENT DATE: 20150203
